FAERS Safety Report 7169637-3 (Version None)
Quarter: 2010Q4

REPORT INFORMATION
  Report Type: 
  Country: None (occurrence: None)
  Receive Date: 20101217
  Receipt Date: 20101208
  Transmission Date: 20110411
  Serious: Yes (Other)
  Sender: FDA-Public Use
  Company Number: CA-JNJFOC-20101204602

PATIENT
  Sex: Male
  Weight: 64 kg

DRUGS (6)
  1. REMICADE [Suspect]
     Indication: RETINOPATHY
     Route: 042
  2. REMICADE [Suspect]
     Route: 042
  3. INSULIN [Concomitant]
  4. LIPITOR [Concomitant]
  5. SYNTHROID [Concomitant]
  6. ASTHMA INHALER [Concomitant]

REACTIONS (5)
  - ABDOMINAL DISTENSION [None]
  - ARTHRALGIA [None]
  - HYPERHIDROSIS [None]
  - MALAISE [None]
  - PALLOR [None]
